FAERS Safety Report 9221817 (Version 1)
Quarter: 2013Q1

REPORT INFORMATION
  Report Type: Spontaneous
  Country: US (occurrence: None)
  Receive Date: 20120904
  Receipt Date: 20120904
  Transmission Date: 20140127
  Serious: Yes (Other)
  Sender: FDA-Public Use
  Company Number: 2012SCPR004278

PATIENT
  Sex: Female

DRUGS (1)
  1. MEGACE ES [Suspect]
     Indication: WEIGHT INCREASED
     Dosage: UNK, UNKNOWN, UNKNOWN

REACTIONS (1)
  - Deep vein thrombosis [None]
